FAERS Safety Report 14116378 (Version 1)
Quarter: 2017Q4

REPORT INFORMATION
  Report Type: Spontaneous
  Country: US (occurrence: US)
  Receive Date: 20171023
  Receipt Date: 20171023
  Transmission Date: 20180321
  Serious: Yes (Other)
  Sender: FDA-Public Use
  Company Number: US-GILEAD-2017-0300309

PATIENT
  Age: 51 Year
  Sex: Male
  Weight: 116.1 kg

DRUGS (9)
  1. HARVONI [Suspect]
     Active Substance: LEDIPASVIR\SOFOSBUVIR
     Indication: CHRONIC HEPATITIS C
     Dosage: UNK
     Route: 065
     Dates: start: 20170310, end: 20170601
  2. RIFAPENTINE [Concomitant]
     Active Substance: RIFAPENTINE
  3. IBUPROFEN. [Concomitant]
     Active Substance: IBUPROFEN
  4. ISONIAZID. [Concomitant]
     Active Substance: ISONIAZID
  5. PYRIDOXINE [Concomitant]
     Active Substance: PYRIDOXINE
  6. LISINOPRIL. [Concomitant]
     Active Substance: LISINOPRIL
  7. METFORMIN [Concomitant]
     Active Substance: METFORMIN HYDROCHLORIDE
  8. LORATADINE. [Concomitant]
     Active Substance: LORATADINE
  9. TYLENOL [Concomitant]
     Active Substance: ACETAMINOPHEN

REACTIONS (3)
  - Drug ineffective [Unknown]
  - Treatment failure [Unknown]
  - Hepatitis C [Unknown]

NARRATIVE: CASE EVENT DATE: 20171003
